FAERS Safety Report 9693794 (Version 1)
Quarter: 2013Q4

REPORT INFORMATION
  Report Type: Spontaneous
  Country: AU (occurrence: AU)
  Receive Date: 20131118
  Receipt Date: 20131118
  Transmission Date: 20140711
  Serious: Yes (Other)
  Sender: FDA-Public Use
  Company Number: AU-ABBVIE-13P-008-1157666-00

PATIENT
  Age: 60 Year
  Sex: Male

DRUGS (2)
  1. VALPROATE SODIUM [Suspect]
     Indication: PRODUCT USED FOR UNKNOWN INDICATION
  2. CLOZARIL [Suspect]
     Indication: PRODUCT USED FOR UNKNOWN INDICATION

REACTIONS (7)
  - Delirium [Unknown]
  - Hypoxia [Unknown]
  - Myocarditis [Unknown]
  - Hypotension [Unknown]
  - Tachycardia [Unknown]
  - Withdrawal syndrome [Unknown]
  - Agitation [Unknown]
